FAERS Safety Report 9516461 (Version 2)
Quarter: 2013Q4

REPORT INFORMATION
  Report Type: Spontaneous
  Country: US (occurrence: US)
  Receive Date: 20130911
  Receipt Date: 20131206
  Transmission Date: 20140711
  Serious: Yes (Other)
  Sender: FDA-Public Use
  Company Number: US-BAYER-2013-109071

PATIENT
  Age: 29 Year
  Sex: Female

DRUGS (1)
  1. MIRENA [Suspect]
     Indication: CONTRACEPTION
     Dosage: 20 MCG/24HR, CONT
     Route: 015
     Dates: start: 20090414, end: 20130813

REACTIONS (6)
  - Device dislocation [None]
  - Abdominal pain upper [None]
  - Genital haemorrhage [None]
  - Pelvic pain [None]
  - Uterine leiomyoma [None]
  - Ovarian cyst [Not Recovered/Not Resolved]
